FAERS Safety Report 6959675-5 (Version None)
Quarter: 2010Q3

REPORT INFORMATION
  Report Type: 
  Country: None (occurrence: None)
  Receive Date: 20100823
  Receipt Date: 20100720
  Transmission Date: 20110219
  Serious: No
  Sender: FDA-Public Use
  Company Number: 016137

PATIENT
  Sex: Female
  Weight: 79.4 kg

DRUGS (20)
  1. CIMZIA [Suspect]
     Indication: RHEUMATOID ARTHRITIS
     Dosage: (200 MG 1X/2 WEEKS SUBCUTANEOUS) ; (200 MG 1X/2 WEEKS SUBCUTANEOUS)
     Route: 058
     Dates: start: 20091201
  2. CIMZIA [Suspect]
     Indication: RHEUMATOID ARTHRITIS
     Dosage: (200 MG 1X/2 WEEKS SUBCUTANEOUS) ; (200 MG 1X/2 WEEKS SUBCUTANEOUS)
     Route: 058
     Dates: start: 20100722
  3. METHOTREXATE [Concomitant]
  4. PREDNISONE [Concomitant]
  5. PROPOX-N [Concomitant]
  6. OMEPRAZOLE [Concomitant]
  7. GABAPENTIN [Concomitant]
  8. TRAMADOL [Concomitant]
  9. FOLIC ACID [Concomitant]
  10. FEXOFENADINE HCL [Concomitant]
  11. NADOLOL [Concomitant]
  12. FENOFIBRATE [Concomitant]
  13. LISINOPRIL HYDROCHLORIDE [Concomitant]
  14. SIMVASTATIN [Concomitant]
  15. CYCLOBENZAPRINE [Concomitant]
  16. PROAIR HFA [Concomitant]
  17. ACETYLSALICYLIC ACID W/BUTALBITAL [Concomitant]
  18. LORAZEPAM [Concomitant]
  19. EPIPEN /00003901/ [Concomitant]
  20. LIDOCAINE [Concomitant]

REACTIONS (3)
  - DIARRHOEA [None]
  - FAECAL INCONTINENCE [None]
  - SINUSITIS [None]
